FAERS Safety Report 23108996 (Version 4)
Quarter: 2023Q4

REPORT INFORMATION
  Report Type: Other
  Country: GB (occurrence: GB)
  Receive Date: 20231026
  Receipt Date: 20231203
  Transmission Date: 20240110
  Serious: Yes (Hospitalization, Disabling, Other)
  Sender: FDA-Public Use
  Company Number: None

PATIENT

DRUGS (6)
  1. MOMETASONE FUROATE [Suspect]
     Active Substance: MOMETASONE FUROATE
     Indication: Product used for unknown indication
     Dosage: UNK
     Route: 065
     Dates: start: 2020
  2. BETAMETHASONE DIPROPIONATE [Suspect]
     Active Substance: BETAMETHASONE DIPROPIONATE
     Indication: Product used for unknown indication
     Dosage: UNK
     Route: 065
     Dates: start: 1990
  3. BETAMETHASONE DIPROPIONATE\CALCIPOTRIENE MONOHYDRATE [Suspect]
     Active Substance: BETAMETHASONE DIPROPIONATE\CALCIPOTRIENE MONOHYDRATE
     Indication: Product used for unknown indication
     Dosage: UNK
     Route: 065
     Dates: start: 2022
  4. EUMOVATE [Suspect]
     Active Substance: CLOBETASONE BUTYRATE
     Indication: Product used for unknown indication
     Dosage: UNK
     Route: 065
     Dates: start: 202302
  5. FUSIDATE SODIUM\HYDROCORTISONE ACETATE [Suspect]
     Active Substance: FUSIDATE SODIUM\HYDROCORTISONE ACETATE
     Indication: Product used for unknown indication
     Dosage: UNK
     Route: 065
     Dates: start: 2021
  6. CHLORTETRACYCLINE\CLOBETASONE\NYSTATIN [Suspect]
     Active Substance: CHLORTETRACYCLINE\CLOBETASONE\NYSTATIN
     Indication: Product used for unknown indication
     Dosage: UNK
     Route: 065

REACTIONS (18)
  - Adrenocortical insufficiency acute [Not Recovered/Not Resolved]
  - Neuropathy peripheral [Not Recovered/Not Resolved]
  - Eczema herpeticum [Recovering/Resolving]
  - Medication error [Unknown]
  - Weight decreased [Not Recovered/Not Resolved]
  - Hepatic steatosis [Recovering/Resolving]
  - Alopecia [Recovering/Resolving]
  - Skin hyperpigmentation [Not Recovered/Not Resolved]
  - Insomnia [Recovering/Resolving]
  - Rash [Not Recovered/Not Resolved]
  - Oedema [Recovering/Resolving]
  - Anal pruritus [Recovered/Resolved]
  - Topical steroid withdrawal reaction [Unknown]
  - Product use issue [Unknown]
  - Pruritus genital [Recovered/Resolved]
  - Skin burning sensation [Recovering/Resolving]
  - General physical health deterioration [Unknown]
  - Mental disorder [Unknown]

NARRATIVE: CASE EVENT DATE: 20220901
